FAERS Safety Report 4588866-6 (Version None)
Quarter: 2005Q1

REPORT INFORMATION
  Report Type: 
  Country: None (occurrence: None)
  Receive Date: 20050222
  Receipt Date: 20050215
  Transmission Date: 20050727
  Serious: Yes (Hospitalization)
  Sender: FDA-Public Use
  Company Number: GB-GLAXOSMITHKLINE-B0371691A

PATIENT
  Age: 86 Year
  Sex: Male

DRUGS (5)
  1. AMOXICILLIN AND CLAVULANATE POTASSIUM [Suspect]
     Indication: PNEUMONIA
     Dosage: 1.2G UNKNOWN
     Route: 042
     Dates: start: 20050120, end: 20050126
  2. VENLAFAXINE HCL [Concomitant]
     Dosage: 75MG PER DAY
     Route: 048
  3. SIMVASTATIN [Concomitant]
     Dosage: 20MG PER DAY
     Route: 048
  4. AMLODIPINE [Concomitant]
     Dosage: 5MG PER DAY
     Route: 048
  5. FRUSEMIDE [Concomitant]
     Dosage: 20MG PER DAY
     Route: 048

REACTIONS (2)
  - JAUNDICE [None]
  - LIVER FUNCTION TEST ABNORMAL [None]
